FAERS Safety Report 12206780 (Version 2)
Quarter: 2016Q2

REPORT INFORMATION
  Report Type: Spontaneous
  Country: US (occurrence: US)
  Receive Date: 20160324
  Receipt Date: 20160428
  Transmission Date: 20160815
  Serious: No
  Sender: FDA-Public Use
  Company Number: US-TEVA-639401ACC

PATIENT
  Age: 22 Year
  Sex: Female
  Weight: 49.94 kg

DRUGS (1)
  1. PLAN B ONE-STEP [Suspect]
     Active Substance: LEVONORGESTREL
     Indication: POST COITAL CONTRACEPTION
     Dates: start: 20160203, end: 20160203

REACTIONS (4)
  - Vaginal haemorrhage [Recovered/Resolved]
  - Menstruation delayed [Recovered/Resolved]
  - Fatigue [Recovered/Resolved]
  - Hypomenorrhoea [Unknown]

NARRATIVE: CASE EVENT DATE: 20160203
